FAERS Safety Report 5849520-3 (Version None)
Quarter: 2008Q3

REPORT INFORMATION
  Report Type: 
  Country: None (occurrence: None)
  Receive Date: 20080819
  Receipt Date: 20080815
  Transmission Date: 20090109
  Serious: Yes (Hospitalization)
  Sender: FDA-Public Use
  Company Number: B0517039A

PATIENT
  Age: 81 Year
  Sex: Female

DRUGS (11)
  1. REQUIP [Suspect]
     Indication: PARKINSON'S DISEASE
     Dosage: .5MG THREE TIMES PER DAY
     Route: 048
     Dates: start: 20080101
  2. CARBIDOPA AND LEVODOPA [Concomitant]
     Dosage: 200MG PER DAY
     Route: 048
  3. DOPA [Concomitant]
     Dosage: 200MG PER DAY
     Route: 048
  4. GASMOTIN [Concomitant]
     Dosage: 7.5MG PER DAY
     Route: 048
  5. FUROSEMIDE [Concomitant]
     Dosage: 20MG PER DAY
     Route: 048
  6. BUP-4 [Concomitant]
     Route: 048
  7. EVISTA [Concomitant]
     Route: 048
  8. ALFAROL [Concomitant]
     Dosage: .5MCG PER DAY
     Route: 048
  9. ALMARL [Concomitant]
     Dosage: 5MG PER DAY
     Route: 048
  10. YODEL S [Concomitant]
     Dosage: 80MG PER DAY
     Route: 048
  11. MAGNESIUM OXIDE [Concomitant]
     Dosage: 2G PER DAY
     Route: 048

REACTIONS (1)
  - METAMORPHOPSIA [None]
